FAERS Safety Report 9354023 (Version 1)
Quarter: 2013Q2

REPORT INFORMATION
  Report Type: Spontaneous
  Country: US (occurrence: None)
  Receive Date: 20130613
  Receipt Date: 20130613
  Transmission Date: 20140414
  Serious: Yes (Other)
  Sender: FDA-Public Use
  Company Number: ACO_36616_2013

PATIENT
  Sex: Male
  Weight: 84.4 kg

DRUGS (3)
  1. AMPYRA (DALFAMPRIDINE) TABLET, 10 MG [Suspect]
     Indication: GAIT DISTURBANCE
     Route: 048
     Dates: start: 2010, end: 2011
  2. HYDROCHLOROTHIAZIDE [Concomitant]
  3. MODAFINIL [Concomitant]

REACTIONS (3)
  - Convulsion [None]
  - Syncope [None]
  - Inappropriate schedule of drug administration [None]
